FAERS Safety Report 24748417 (Version 1)
Quarter: 2024Q4

REPORT INFORMATION
  Report Type: Report from Study
  Country: CA (occurrence: CA)
  Receive Date: 20241218
  Receipt Date: 20241218
  Transmission Date: 20250115
  Serious: Yes (Hospitalization, Other)
  Sender: OTSUKA
  Company Number: CA-OTSUKA-2024_033288

PATIENT
  Sex: Female

DRUGS (1)
  1. ARIPIPRAZOLE [Suspect]
     Active Substance: ARIPIPRAZOLE
     Indication: Product use in unapproved indication
     Dosage: 400 MG, Q 21 DAYS (EVERY 3 WEEKS)
     Route: 030

REACTIONS (2)
  - Mental disorder [Recovering/Resolving]
  - Inappropriate schedule of product administration [Recovering/Resolving]
